FAERS Safety Report 12463359 (Version 1)
Quarter: 2016Q2

REPORT INFORMATION
  Report Type: Spontaneous
  Country: US (occurrence: None)
  Receive Date: 20160613
  Receipt Date: 20160613
  Transmission Date: 20160815
  Serious: Yes (Hospitalization)
  Sender: FDA-Public Use
  Company Number: None

PATIENT
  Age: 49 Year
  Sex: Male
  Weight: 88 kg

DRUGS (10)
  1. PLAVIX [Concomitant]
     Active Substance: CLOPIDOGREL BISULFATE
  2. ATORVASTATIN [Concomitant]
     Active Substance: ATORVASTATIN
  3. PRILOSEC [Concomitant]
     Active Substance: OMEPRAZOLE MAGNESIUM
  4. LABETALOL [Concomitant]
     Active Substance: LABETALOL\LABETALOL HYDROCHLORIDE
  5. CYCLOBENZAPRINE 10 MG [Suspect]
     Active Substance: CYCLOBENZAPRINE
     Indication: MUSCLE SPASMS
     Dosage: 30  TABLETS AT BEDTIME
     Route: 048
     Dates: start: 20160603, end: 20160604
  6. OXYCODONE [Concomitant]
     Active Substance: OXYCODONE
  7. AMLODIPINE [Concomitant]
     Active Substance: AMLODIPINE BESYLATE
  8. FLINTSTONE VITAMIN [Concomitant]
  9. ISOSORB [Concomitant]
  10. ASPIRN [Concomitant]
     Active Substance: ASPIRIN

REACTIONS (3)
  - Joint injury [None]
  - Seizure [None]
  - Fall [None]

NARRATIVE: CASE EVENT DATE: 20160605
